FAERS Safety Report 8216729-3 (Version None)
Quarter: 2012Q1

REPORT INFORMATION
  Report Type: 
  Country: None (occurrence: None)
  Receive Date: 20120316
  Receipt Date: 20120301
  Transmission Date: 20120608
  Serious: Yes (Disabling, Other)
  Sender: FDA-Public Use
  Company Number: BR-ROCHE-1045118

PATIENT
  Sex: Female

DRUGS (5)
  1. LYRICA [Suspect]
     Indication: NEUROPATHY PERIPHERAL
     Route: 048
  2. CITALOPRAM HYDROBROMIDE [Concomitant]
     Indication: DEPRESSION
  3. CLONAZEPAM [Suspect]
     Indication: PRODUCT USED FOR UNKNOWN INDICATION
  4. MACRODANTIN [Concomitant]
     Dates: start: 20110901
  5. MIRTAX [Concomitant]
     Indication: MYALGIA
     Dates: start: 20120227

REACTIONS (6)
  - DYSARTHRIA [None]
  - ABNORMAL BEHAVIOUR [None]
  - BALANCE DISORDER [None]
  - SENSORY LOSS [None]
  - DECREASED ACTIVITY [None]
  - SOMNOLENCE [None]
